FAERS Safety Report 10594221 (Version 4)
Quarter: 2015Q2

REPORT INFORMATION
  Report Type: Report from Study
  Country: GB (occurrence: GB)
  Receive Date: 20141119
  Receipt Date: 20150519
  Transmission Date: 20150821
  Serious: Yes (Hospitalization)
  Sender: FDA-Public Use
  Company Number: GB-B.I. PHARMACEUTICALS,INC./RIDGEFIELD-2014-BI-53464BI

PATIENT
  Age: 72 Year
  Sex: Male

DRUGS (17)
  1. PIOGLITAZONE [Concomitant]
     Active Substance: PIOGLITAZONE
     Indication: DIABETES MELLITUS
     Dosage: 30 MG
     Route: 048
     Dates: start: 201001
  2. ORAMORPH SR SUSTAINED RELEASE [Concomitant]
     Active Substance: MORPHINE SULFATE
     Indication: DYSPNOEA
     Dosage: 30 MG
     Route: 048
     Dates: start: 20100607
  3. PARACETAMOL [Concomitant]
     Active Substance: ACETAMINOPHEN
     Indication: POSTOPERATIVE ANALGESIA
     Dosage: 4 G
     Route: 048
     Dates: start: 20101223, end: 20101226
  4. PACLITAXEL. [Suspect]
     Active Substance: PACLITAXEL
     Indication: NEOPLASM MALIGNANT
     Dosage: 385 MG
     Route: 042
     Dates: start: 20101012, end: 20101102
  5. IPRATROPIUM [Concomitant]
     Active Substance: IPRATROPIUM
     Indication: DYSPNOEA
     Dosage: 20 MCG
     Route: 050
     Dates: start: 201001
  6. LOPERAMIDE [Concomitant]
     Active Substance: LOPERAMIDE
     Indication: DIARRHOEA
     Dosage: 16 MG
     Route: 048
     Dates: start: 20101014
  7. TAMSULOSIN [Concomitant]
     Active Substance: TAMSULOSIN
     Indication: BLADDER NECK OBSTRUCTION
     Dosage: 400 MCG
     Route: 048
     Dates: start: 20101224
  8. BIBW 2992 [Suspect]
     Active Substance: AFATINIB
     Indication: NEOPLASM MALIGNANT
     Dosage: 20 MG
     Route: 048
     Dates: start: 20101013, end: 20101226
  9. LANSOPRAZOLE. [Concomitant]
     Active Substance: LANSOPRAZOLE
     Indication: DYSPEPSIA
     Dosage: 30 MG
     Route: 048
     Dates: start: 20101108
  10. CARBOPLATIN. [Suspect]
     Active Substance: CARBOPLATIN
     Indication: NEOPLASM MALIGNANT
     Dosage: 690 MG
     Route: 042
     Dates: start: 20101012, end: 20101102
  11. DILTIAZEN HYDROCHLORIDE [Concomitant]
     Indication: PROPHYLAXIS
     Dosage: 60 MG
     Route: 048
     Dates: start: 20100529
  12. TINZOSPARIN [Concomitant]
     Indication: PROPHYLAXIS
     Dosage: 5000 U
     Route: 058
     Dates: start: 20101223, end: 20101225
  13. RAMIPRIL. [Concomitant]
     Active Substance: RAMIPRIL
     Indication: HYPERTENSION
     Dosage: 10 MG
     Route: 048
     Dates: start: 1998
  14. BENYLIN [Concomitant]
     Active Substance: DIPHENHYDRAMINE HYDROCHLORIDE
     Indication: COUGH
     Dosage: 40 ML
     Route: 048
  15. SIMVASTATIN. [Concomitant]
     Active Substance: SIMVASTATIN
     Indication: HYPERCHOLESTEROLAEMIA
     Dosage: 10 MG
     Route: 048
     Dates: start: 1998
  16. METFORMIN [Concomitant]
     Active Substance: METFORMIN HYDROCHLORIDE
     Indication: DIABETES MELLITUS
     Dosage: 850 MG
     Route: 048
     Dates: start: 1998
  17. CALMURID [Concomitant]
     Indication: ECZEMA
     Dosage: NO STRENGTH
     Route: 065

REACTIONS (2)
  - Thrombocytopenia [Recovered/Resolved]
  - Blood creatinine increased [Recovered/Resolved]

NARRATIVE: CASE EVENT DATE: 20101225
